FAERS Safety Report 18299553 (Version 1)
Quarter: 2020Q3

REPORT INFORMATION
  Report Type: Spontaneous
  Country: US (occurrence: US)
  Receive Date: 20200922
  Receipt Date: 20200922
  Transmission Date: 20201103
  Serious: Yes (Other)
  Sender: FDA-Public Use
  Company Number: US-PURDUE-USA-2020-0166789

PATIENT
  Sex: Male

DRUGS (2)
  1. OXYCONTIN [Suspect]
     Active Substance: OXYCODONE HYDROCHLORIDE
     Indication: PRODUCT USED FOR UNKNOWN INDICATION
     Dosage: UNK
     Route: 048
  2. OXYCODONE HCL CR TABLETS (SIMILAR TO NDA 22?272) [Suspect]
     Active Substance: OXYCODONE HYDROCHLORIDE
     Indication: PRODUCT USED FOR UNKNOWN INDICATION
     Dosage: UNK
     Route: 048

REACTIONS (12)
  - Emotional distress [Unknown]
  - Speech disorder [Unknown]
  - Unevaluable event [Unknown]
  - Headache [Unknown]
  - Drug dependence [Unknown]
  - Major depression [Unknown]
  - Cognitive disorder [Unknown]
  - Impaired self-care [Unknown]
  - Pain [Unknown]
  - Amnesia [Unknown]
  - Sleep disorder [Unknown]
  - Developmental delay [Unknown]
